FAERS Safety Report 25213011 (Version 4)
Quarter: 2025Q2

REPORT INFORMATION
  Report Type: Report from Study
  Country: BE (occurrence: BE)
  Receive Date: 20250418
  Receipt Date: 20250502
  Transmission Date: 20250717
  Serious: Yes (Hospitalization)
  Sender: ABBVIE
  Company Number: BE-ABBVIE-6235418

PATIENT
  Age: 81 Year
  Sex: Female

DRUGS (3)
  1. FOSCARBIDOPA\FOSLEVODOPA [Suspect]
     Active Substance: FOSCARBIDOPA\FOSLEVODOPA
     Indication: Parkinson^s disease
     Route: 058
     Dates: start: 20241014, end: 20241017
  2. FOSCARBIDOPA\FOSLEVODOPA [Suspect]
     Active Substance: FOSCARBIDOPA\FOSLEVODOPA
     Route: 058
     Dates: start: 20250403
  3. FOSCARBIDOPA\FOSLEVODOPA [Suspect]
     Active Substance: FOSCARBIDOPA\FOSLEVODOPA
     Route: 058
     Dates: start: 20241017, end: 20250403

REACTIONS (6)
  - Physiotherapy [Unknown]
  - Dyskinesia [Unknown]
  - Catheter site discolouration [Unknown]
  - Occupational therapy [Unknown]
  - On and off phenomenon [Unknown]
  - Catheter site hypersensitivity [Unknown]

NARRATIVE: CASE EVENT DATE: 20250407
